FAERS Safety Report 17484395 (Version 1)
Quarter: 2020Q1

REPORT INFORMATION
  Report Type: Other
  Country: TR (occurrence: TR)
  Receive Date: 20200302
  Receipt Date: 20200302
  Transmission Date: 20200409
  Serious: Yes (Other)
  Sender: FDA-Public Use
  Company Number: TR-SAOL THERAPEUTICS-2020SAO00039

PATIENT
  Age: 53 Year
  Sex: Male
  Weight: 47.17 kg

DRUGS (14)
  1. URSOFALK CAPS [Concomitant]
     Dosage: 3X500 MG
     Route: 048
  2. HEPAGAM B [Suspect]
     Active Substance: HUMAN HEPATITIS B VIRUS IMMUNE GLOBULIN
     Indication: SURGERY
     Dosage: 312 IU 2 TIMES (ALSO REPORTED AS 2 CT.)
     Route: 042
     Dates: start: 20191223
  3. CELLCEPT TB [Concomitant]
     Dosage: 2X500 MG
     Route: 048
  4. DELTACORTRIL TB [Concomitant]
     Dosage: 1X20 MG
     Route: 048
  5. PANTPAS TB [Concomitant]
     Dosage: 1X1
     Route: 048
  6. GERALGINE TB [Concomitant]
     Dosage: 3X500 MG
     Route: 048
  7. HEPAGAM B [Suspect]
     Active Substance: HUMAN HEPATITIS B VIRUS IMMUNE GLOBULIN
     Indication: ANTIVIRAL PROPHYLAXIS
     Dosage: 1560 IU, 1 TIME AFTER 7 DAYS  (ALSO REPORTED AS 1 CT. FOR 7 DAYS)
     Route: 042
  8. PROGRAF CAPS [Concomitant]
     Dosage: 2X2 MG
     Route: 048
  9. HEPAGAM B [Suspect]
     Active Substance: HUMAN HEPATITIS B VIRUS IMMUNE GLOBULIN
     Indication: ANTIVIRAL PROPHYLAXIS
  10. BACTRIM [Concomitant]
     Active Substance: SULFAMETHOXAZOLE\TRIMETHOPRIM
     Dosage: 400/80 MG 1X1
     Route: 048
  11. HEPAGAM B [Suspect]
     Active Substance: HUMAN HEPATITIS B VIRUS IMMUNE GLOBULIN
     Indication: LIVER TRANSPLANT
     Dosage: 1560 IU 6 TIMES (ALSO REPORTED AS 6 CT)
     Route: 042
     Dates: start: 20191223
  12. ECOPIRIN [Concomitant]
     Active Substance: ASPIRIN
     Dosage: 1X100 MG
     Route: 048
  13. ZOLAX [Concomitant]
     Dosage: 100 MG 1X1
     Route: 048
  14. VALCYTE TB [Concomitant]
     Dosage: 1X900 MG TB
     Route: 048

REACTIONS (3)
  - Hepatitis B surface antibody negative [Unknown]
  - Hepatitis B surface antigen positive [Unknown]
  - Drug ineffective [Unknown]
